FAERS Safety Report 14558030 (Version 3)
Quarter: 2018Q2

REPORT INFORMATION
  Report Type: Report from Study
  Country: IT (occurrence: IT)
  Receive Date: 20180221
  Receipt Date: 20180402
  Transmission Date: 20180711
  Serious: Yes (Disabling, Other)
  Sender: FDA-Public Use
  Company Number: IT-JNJFOC-20180227452

PATIENT
  Age: 54 Year
  Sex: Female
  Weight: 67 kg

DRUGS (2)
  1. ENOXAPARIN [Concomitant]
     Active Substance: ENOXAPARIN
     Route: 065
     Dates: start: 20180206
  2. XARELTO [Suspect]
     Active Substance: RIVAROXABAN
     Indication: PRODUCT USED FOR UNKNOWN INDICATION
     Route: 048
     Dates: start: 20171206, end: 20180206

REACTIONS (2)
  - Deep vein thrombosis [Recovering/Resolving]
  - Deep vein thrombosis [Recovering/Resolving]

NARRATIVE: CASE EVENT DATE: 20180205
